FAERS Safety Report 5099908-6 (Version None)
Quarter: 2006Q3

REPORT INFORMATION
  Report Type: 
  Country: None (occurrence: None)
  Receive Date: 20060908
  Receipt Date: 20060606
  Transmission Date: 20061208
  Serious: Yes (Other)
  Sender: FDA-Public Use
  Company Number: PHBS2006JP08548

PATIENT
  Age: 63 Year
  Sex: Male

DRUGS (3)
  1. LIMAS [Concomitant]
     Dosage: 600 MG/D
     Route: 048
     Dates: start: 20020705, end: 20050111
  2. AKINETON [Concomitant]
     Dosage: 3 MG/D
     Route: 048
     Dates: start: 20020705, end: 20050111
  3. LUDIOMIL [Suspect]
     Indication: BIPOLAR I DISORDER
     Dosage: 25 MG, QID
     Route: 048
     Dates: start: 20041224, end: 20050111

REACTIONS (1)
  - NEUROLEPTIC MALIGNANT SYNDROME [None]
